FAERS Safety Report 5715752-8 (Version None)
Quarter: 2008Q2

REPORT INFORMATION
  Report Type: 
  Country: None (occurrence: None)
  Receive Date: 20080423
  Receipt Date: 20080423
  Transmission Date: 20081010
  Serious: No
  Sender: FDA-Public Use
  Company Number: None

PATIENT
  Sex: Male

DRUGS (1)
  1. RAPTIVA [Suspect]
     Dosage: 125 MG SC
     Route: 058
     Dates: start: 20040902, end: 20080413

REACTIONS (4)
  - BLOOD DISORDER [None]
  - CONTUSION [None]
  - LYMPHATIC DISORDER [None]
  - PLATELET COUNT DECREASED [None]
